FAERS Safety Report 9505373 (Version 1)
Quarter: 2013Q1

REPORT INFORMATION
  Report Type: Spontaneous
  Country: US (occurrence: None)
  Receive Date: 20130220
  Receipt Date: 20130220
  Transmission Date: 20140127
  Serious: No
  Sender: FDA-Public Use
  Company Number: 1000040478

PATIENT
  Sex: Female

DRUGS (2)
  1. VIIBYRD (VILAZODONE HYDROCHLORIDE) (10 MILLIGRAM, TABLETS) [Suspect]
     Indication: DEPRESSION
     Dosage: 10 MG (10 MG, 1 IN 1 D), ORAL
     Route: 048
     Dates: start: 20121106, end: 20121112
  2. LITHIUM (LITHIUM) (LITHIUM) [Concomitant]

REACTIONS (6)
  - Muscle spasms [None]
  - Amnesia [None]
  - Muscle twitching [None]
  - Insomnia [None]
  - Increased appetite [None]
  - Diarrhoea [None]
